FAERS Safety Report 16909428 (Version 5)
Quarter: 2020Q1

REPORT INFORMATION
  Report Type: Report from Study
  Country: US (occurrence: US)
  Receive Date: 20191011
  Receipt Date: 20200218
  Transmission Date: 20200409
  Serious: Yes (Death)
  Sender: FDA-Public Use
  Company Number: US-PFIZER INC-2019439269

PATIENT
  Age: 80 Year
  Sex: Male
  Weight: 89.9 kg

DRUGS (1)
  1. AXITINIB [Suspect]
     Active Substance: AXITINIB
     Indication: SQUAMOUS CELL CARCINOMA OF SKIN
     Dosage: 7 MG, 2X/DAY (EVERY 12 HOURS)
     Route: 048
     Dates: start: 20190905

REACTIONS (1)
  - Cardiac arrest [Fatal]

NARRATIVE: CASE EVENT DATE: 20191007
